FAERS Safety Report 7633739-5 (Version None)
Quarter: 2011Q3

REPORT INFORMATION
  Report Type: 
  Country: None (occurrence: None)
  Receive Date: 20110701
  Receipt Date: 20101019
  Transmission Date: 20111222
  Serious: Yes (Other)
  Sender: FDA-Public Use
  Company Number: 2010SP055956

PATIENT
  Age: 81 Year
  Sex: Female

DRUGS (2)
  1. INTEGRILIN [Suspect]
     Indication: STENT PLACEMENT
     Dosage: 0.75 MG;IV
     Route: 042
  2. INTEGRILIN [Suspect]
     Indication: ANGIOPLASTY
     Dosage: 0.75 MG;IV
     Route: 042

REACTIONS (1)
  - RETROPERITONEAL HAEMORRHAGE [None]
